FAERS Safety Report 5413763-3 (Version None)
Quarter: 2007Q3

REPORT INFORMATION
  Report Type: 
  Country: None (occurrence: None)
  Receive Date: 20070814
  Receipt Date: 20070806
  Transmission Date: 20080115
  Serious: Yes (Death)
  Sender: FDA-Public Use
  Company Number: JP-ELI_LILLY_AND_COMPANY-JP200707002523

PATIENT
  Age: 61 Year
  Sex: Male
  Weight: 54.85 kg

DRUGS (11)
  1. PEMETREXED [Suspect]
     Indication: PLEURAL MESOTHELIOMA MALIGNANT
     Dosage: 740 MG, OTHER
     Route: 042
     Dates: start: 20070209, end: 20070525
  2. *CISPLATIN [Suspect]
     Indication: PLEURAL MESOTHELIOMA MALIGNANT
     Dosage: 112 MG, OTHER
     Route: 042
     Dates: start: 20070209, end: 20070525
  3. PANVITAN [Concomitant]
     Dosage: 0.5 MG, DAILY (1/D)
     Route: 048
     Dates: start: 20070201, end: 20070705
  4. CYANOCOBALAMIN [Concomitant]
     Dosage: 1 MG, UNK
     Route: 030
     Dates: start: 20070201, end: 20070201
  5. CYANOCOBALAMIN [Concomitant]
     Dosage: 1 MG, OTHER
     Route: 030
     Dates: start: 20070401, end: 20070401
  6. CYANOCOBALAMIN [Concomitant]
     Dosage: 1 MG, OTHER
     Route: 030
     Dates: start: 20070604, end: 20070604
  7. PREDONINE [Concomitant]
     Indication: TUMOUR ASSOCIATED FEVER
     Dosage: 10 MG, DAILY (1/D)
     Route: 048
     Dates: end: 20070511
  8. ZANTAC 150 [Concomitant]
     Indication: PROPHYLAXIS
     Dosage: 300 MG, DAILY (1/D)
     Route: 048
     Dates: end: 20070729
  9. LORAZEPAM [Concomitant]
     Indication: PROPHYLAXIS
     Dosage: 1 MG, DAILY (1/D)
     Route: 048
     Dates: end: 20070705
  10. LOXONIN [Concomitant]
     Indication: CANCER PAIN
     Dosage: 180 MG, DAILY (1/D)
     Route: 048
     Dates: end: 20070705
  11. MEDICON [Concomitant]
     Indication: PROPHYLAXIS
     Dosage: 90 MG, DAILY (1/D)
     Route: 048
     Dates: end: 20070705

REACTIONS (2)
  - GASTROINTESTINAL HAEMORRHAGE [None]
  - INTERSTITIAL LUNG DISEASE [None]
